FAERS Safety Report 9069086 (Version 1)
Quarter: 2013Q1

REPORT INFORMATION
  Report Type: Spontaneous
  Country: US (occurrence: None)
  Receive Date: 20130213
  Receipt Date: 20130213
  Transmission Date: 20140127
  Serious: Yes (Other)
  Sender: FDA-Public Use
  Company Number: None

PATIENT
  Age: 47 Year
  Sex: Female
  Weight: 63.05 kg

DRUGS (1)
  1. RISPERDAL [Suspect]

REACTIONS (4)
  - Sleep terror [None]
  - Screaming [None]
  - Incorrect dose administered [None]
  - Abnormal dreams [None]
